FAERS Safety Report 4806135-3 (Version None)
Quarter: 2005Q4

REPORT INFORMATION
  Report Type: 
  Country: None (occurrence: None)
  Receive Date: 20051019
  Receipt Date: 20051019
  Transmission Date: 20060501
  Serious: No
  Sender: FDA-Public Use
  Company Number: None

PATIENT
  Age: 61 Year
  Sex: Male
  Weight: 80.7403 kg

DRUGS (2)
  1. KETEK [Suspect]
     Indication: SINUSITIS
     Dosage: 2 BID PO
     Route: 048
     Dates: start: 20051008, end: 20051013
  2. OTC COLD MEDICATION [Concomitant]

REACTIONS (1)
  - PANCREATITIS [None]
